FAERS Safety Report 16382333 (Version 3)
Quarter: 2019Q4

REPORT INFORMATION
  Report Type: Report from Study
  Country: US (occurrence: US)
  Receive Date: 20190603
  Receipt Date: 20191221
  Transmission Date: 20200122
  Serious: No
  Sender: FDA-Public Use
  Company Number: PHEH2019US022974

PATIENT
  Sex: Female

DRUGS (1)
  1. GILENYA [Suspect]
     Active Substance: FINGOLIMOD HYDROCHLORIDE
     Indication: MULTIPLE SCLEROSIS
     Dosage: 0.5 MG, QD
     Route: 048
     Dates: start: 20190225

REACTIONS (9)
  - Central nervous system lesion [Unknown]
  - Abdominal pain upper [Unknown]
  - Dizziness [Not Recovered/Not Resolved]
  - Sinus disorder [Unknown]
  - Vision blurred [Unknown]
  - Strabismus [Unknown]
  - Diarrhoea [Unknown]
  - Rhinalgia [Unknown]
  - Gastrointestinal disorder [Unknown]
